FAERS Safety Report 7986521-3 (Version None)
Quarter: 2011Q4

REPORT INFORMATION
  Report Type: 
  Country: None (occurrence: None)
  Receive Date: 20111216
  Receipt Date: 20110204
  Transmission Date: 20120403
  Serious: Yes (Other)
  Sender: FDA-Public Use
  Company Number: US-BRISTOL-MYERS SQUIBB COMPANY-15531536

PATIENT
  Sex: Male

DRUGS (3)
  1. RISPERDAL [Suspect]
  2. ABILIFY [Suspect]
  3. LITHIUM CARBONATE [Suspect]

REACTIONS (1)
  - CONVULSION [None]
